FAERS Safety Report 9537142 (Version 3)
Quarter: 2013Q4

REPORT INFORMATION
  Report Type: Spontaneous
  Country: IT (occurrence: IT)
  Receive Date: 20130919
  Receipt Date: 20131115
  Transmission Date: 20140711
  Serious: Yes (Hospitalization)
  Sender: FDA-Public Use
  Company Number: IT-PFIZER INC-2013263654

PATIENT
  Age: 75 Year
  Sex: Male

DRUGS (14)
  1. CORDARONE [Suspect]
     Indication: ATRIAL FIBRILLATION
     Dosage: 200 MG, DAILY
     Route: 048
     Dates: start: 20130802, end: 20130818
  2. CORDARONE [Suspect]
     Indication: ATRIAL FIBRILLATION
     Dosage: UNK
     Route: 042
     Dates: start: 20130730, end: 20130802
  3. CARDICOR [Suspect]
     Indication: ATRIAL FIBRILLATION
     Dosage: 2.5 MG, DAILY
     Route: 048
     Dates: start: 20130731, end: 20130818
  4. CYCLOPHOSPHAMIDE [Concomitant]
     Dosage: UNK
     Dates: start: 20130730, end: 20130807
  5. PREDNISONE [Concomitant]
     Dosage: UNK
  6. FOSFOMYCIN [Concomitant]
     Dosage: UNK
  7. FLUCONAZOLE [Concomitant]
     Dosage: UNK
  8. INSULIN LISPRO [Concomitant]
     Dosage: UNK
  9. MEPRAL [Concomitant]
     Dosage: UNK
  10. LASIX [Concomitant]
     Dosage: UNK
  11. KANRENOL [Concomitant]
     Dosage: UNK
  12. NITROGLICERINA BIOINDUSTRIA LIM [Concomitant]
     Dosage: UNK
  13. MERREM [Concomitant]
     Dosage: UNK
  14. CLEXANE [Concomitant]
     Dosage: UNK

REACTIONS (1)
  - Atrioventricular block [Recovered/Resolved]
